FAERS Safety Report 18205965 (Version 1)
Quarter: 2020Q3

REPORT INFORMATION
  Report Type: Spontaneous
  Country: FR (occurrence: FR)
  Receive Date: 20200828
  Receipt Date: 20200828
  Transmission Date: 20201103
  Serious: Yes (Other)
  Sender: FDA-Public Use
  Company Number: FR-GLAXOSMITHKLINE-FR2020GSK171010

PATIENT
  Age: 87 Year
  Sex: Female

DRUGS (2)
  1. AMOXICILLIN. [Suspect]
     Active Substance: AMOXICILLIN
     Indication: MENINGOENCEPHALITIS VIRAL
     Dosage: UNK
  2. ACICLOVIR [Suspect]
     Active Substance: ACYCLOVIR
     Indication: MENINGOENCEPHALITIS VIRAL
     Dosage: 10 MG/KG THREE TIMES A DAY, EACH INFUSED FOR 3 HOURS
     Route: 042

REACTIONS (5)
  - Toxic encephalopathy [Recovered/Resolved]
  - Renal tubular necrosis [Recovered/Resolved]
  - Condition aggravated [Recovered/Resolved]
  - Anuria [Recovered/Resolved]
  - Depressed level of consciousness [Recovered/Resolved]
